FAERS Safety Report 23267359 (Version 1)
Quarter: 2023Q4

REPORT INFORMATION
  Report Type: Report from Study
  Country: DE (occurrence: DE)
  Receive Date: 20231206
  Receipt Date: 20231206
  Transmission Date: 20240110
  Serious: Yes (Other)
  Sender: FDA-Public Use
  Company Number: DE-JNJFOC-20200703309

PATIENT
  Age: 4 Decade
  Sex: Male

DRUGS (6)
  1. SIMPONI [Suspect]
     Active Substance: GOLIMUMAB
     Indication: Psoriatic arthropathy
     Route: 058
     Dates: start: 20180514, end: 20220314
  2. SIMPONI [Suspect]
     Active Substance: GOLIMUMAB
     Indication: Axial spondyloarthritis
     Route: 058
     Dates: start: 20220315, end: 20220730
  3. ETORICOXIB [Concomitant]
     Active Substance: ETORICOXIB
     Dates: start: 20180415, end: 20180817
  4. ETORICOXIB [Concomitant]
     Active Substance: ETORICOXIB
     Dates: start: 20180514, end: 20180817
  5. COSENTYX [Concomitant]
     Active Substance: SECUKINUMAB
     Dates: start: 20221013
  6. NAPROXEN [Concomitant]
     Active Substance: NAPROXEN
     Dates: start: 20221228

REACTIONS (5)
  - Pregnancy of partner [Recovered/Resolved]
  - Influenza like illness [Unknown]
  - Eye irritation [Unknown]
  - Conjunctivitis [Unknown]
  - Rash [Unknown]

NARRATIVE: CASE EVENT DATE: 20191218
